FAERS Safety Report 9974349 (Version 1)
Quarter: 2014Q1

REPORT INFORMATION
  Report Type: Report from Study
  Country: US (occurrence: US)
  Receive Date: 20140306
  Receipt Date: 20140306
  Transmission Date: 20141002
  Serious: No
  Sender: FDA-Public Use
  Company Number: US-ABBVIE-13P-163-1158989-00

PATIENT
  Age: 40 Year
  Sex: Female

DRUGS (8)
  1. HUMIRA [Suspect]
     Indication: CROHN^S DISEASE
     Dates: start: 20130903
  2. AZULFIDINE [Concomitant]
     Indication: CROHN^S DISEASE
  3. NEXIUM [Concomitant]
     Indication: GASTROOESOPHAGEAL REFLUX DISEASE
     Dosage: 40 MG DAILY
  4. CELEXA [Concomitant]
     Indication: ANXIETY
     Dosage: 20 MG DAILY
  5. CELEXA [Concomitant]
     Indication: DEPRESSION
  6. VALIUM [Concomitant]
     Indication: ANXIETY
     Dosage: AS NEEDED
  7. TENORMIN [Concomitant]
     Indication: HYPERTENSION
     Dosage: 50 MG DAILY
  8. CLARITIN [Concomitant]
     Indication: SEASONAL ALLERGY

REACTIONS (1)
  - Incorrect dose administered [Recovered/Resolved]
